FAERS Safety Report 7056902-3 (Version None)
Quarter: 2010Q4

REPORT INFORMATION
  Report Type: 
  Country: None (occurrence: None)
  Receive Date: 20101022
  Receipt Date: 20101013
  Transmission Date: 20110411
  Serious: Yes (Other)
  Sender: FDA-Public Use
  Company Number: HR-JNJFOC-20101004265

PATIENT
  Age: 22 Year
  Sex: Male

DRUGS (9)
  1. RISPOLEPT [Suspect]
     Indication: ACUTE PSYCHOSIS
     Dosage: DOSE: 1MG/ML
     Route: 065
  2. RISPOLEPT [Suspect]
     Dosage: DOSE: 1MG/ML
     Route: 065
  3. RISPOLEPT [Suspect]
     Dosage: DOSE: 1MG/ML
     Route: 065
  4. RISPOLEPT CONSTA [Suspect]
     Indication: PRODUCT USED FOR UNKNOWN INDICATION
     Route: 030
  5. HALOPERIDOL [Suspect]
     Indication: ACUTE PSYCHOSIS
     Route: 065
  6. ZIPRASIDONE HCL [Suspect]
     Indication: ACUTE PSYCHOSIS
     Route: 065
  7. OLANZAPINE [Suspect]
     Indication: ACUTE PSYCHOSIS
     Route: 065
  8. NORMABEL [Concomitant]
     Route: 065
  9. AKINETON [Concomitant]
     Route: 065

REACTIONS (6)
  - BLOOD TRIGLYCERIDES INCREASED [None]
  - DEPERSONALISATION [None]
  - DEREALISATION [None]
  - DYSKINESIA [None]
  - HYPERPROLACTINAEMIA [None]
  - WEIGHT INCREASED [None]
